FAERS Safety Report 7134849-1 (Version None)
Quarter: 2010Q4

REPORT INFORMATION
  Report Type: 
  Country: None (occurrence: None)
  Receive Date: 20101130
  Receipt Date: 20101130
  Transmission Date: 20110411
  Serious: No
  Sender: FDA-Public Use
  Company Number: None

PATIENT
  Age: 27 Year
  Sex: Female
  Weight: 74.8435 kg

DRUGS (1)
  1. CETIRIZINE HYDROCHLORIDE 10MG MYLAN [Suspect]
     Indication: HYPERSENSITIVITY
     Dosage: 1 PILL 1X/DAY PO
     Route: 048
     Dates: start: 20100811, end: 20101119

REACTIONS (5)
  - ANXIETY [None]
  - CONFUSIONAL STATE [None]
  - CRYING [None]
  - EMOTIONAL DISORDER [None]
  - PRODUCT SUBSTITUTION ISSUE [None]
